FAERS Safety Report 21914370 (Version 1)
Quarter: 2023Q1

REPORT INFORMATION
  Report Type: Spontaneous
  Country: FR (occurrence: FR)
  Receive Date: 20230126
  Receipt Date: 20230126
  Transmission Date: 20230418
  Serious: Yes (Other)
  Sender: FDA-Public Use
  Company Number: FR-BIOVITRUM-2022FR13927

PATIENT
  Age: 18 Month
  Sex: Female

DRUGS (1)
  1. NITISINONE [Suspect]
     Active Substance: NITISINONE
     Indication: Tyrosinaemia

REACTIONS (4)
  - Liver transplant [Unknown]
  - Alpha 1 foetoprotein increased [Unknown]
  - Hepatic mass [Unknown]
  - Dysplasia [Unknown]
